FAERS Safety Report 6148783-7 (Version None)
Quarter: 2009Q2

REPORT INFORMATION
  Report Type: 
  Country: None (occurrence: None)
  Receive Date: 20090408
  Receipt Date: 20090331
  Transmission Date: 20091009
  Serious: Yes (Death)
  Sender: FDA-Public Use
  Company Number: JP-ELI_LILLY_AND_COMPANY-JP200904000252

PATIENT
  Age: 34 Year
  Sex: Male
  Weight: 64 kg

DRUGS (1)
  1. ZYPREXA [Suspect]
     Dosage: 10 MG, DAILY (1/D)
     Route: 048
     Dates: start: 20080201, end: 20090301

REACTIONS (1)
  - MYOCARDIAL ISCHAEMIA [None]
